FAERS Safety Report 9496457 (Version 2)
Quarter: 2013Q4

REPORT INFORMATION
  Report Type: Report from Study
  Country: DE (occurrence: DE)
  Receive Date: 20130904
  Receipt Date: 20131203
  Transmission Date: 20140711
  Serious: Yes (Death)
  Sender: FDA-Public Use
  Company Number: PHHY2013DE095553

PATIENT
  Sex: Female

DRUGS (1)
  1. SANDOSTATIN LAR [Suspect]
     Indication: PANCREATIC NEUROENDOCRINE TUMOUR
     Dosage: 30 MG, EVERY 28 DAYS
     Dates: start: 201206, end: 201307

REACTIONS (1)
  - Malignant neoplasm progression [Fatal]
